FAERS Safety Report 11999988 (Version 1)
Quarter: 2016Q1

REPORT INFORMATION
  Report Type: Spontaneous
  Country: SE (occurrence: SE)
  Receive Date: 20160204
  Receipt Date: 20160204
  Transmission Date: 20160526
  Serious: Yes (Other)
  Sender: FDA-Public Use
  Company Number: SE-NOVOPROD-478952

PATIENT
  Age: 65 Year
  Sex: Female

DRUGS (8)
  1. ALVEDON [Concomitant]
     Active Substance: ACETAMINOPHEN
     Dosage: 665 MG
  2. PARAFLEX [Concomitant]
     Active Substance: CHLORZOXAZONE
  3. BRICANYL [Concomitant]
     Active Substance: TERBUTALINE SULFATE
  4. MINDIAB [Concomitant]
     Active Substance: GLIPIZIDE
  5. CETIRIZINE                         /00884302/ [Concomitant]
     Active Substance: CETIRIZINE HYDROCHLORIDE
  6. OMEPRAZOLE                         /00661202/ [Concomitant]
  7. VICTOZA [Suspect]
     Active Substance: LIRAGLUTIDE
     Indication: DIABETES MELLITUS
     Dosage: 0.6 - 1.2 MG, QD
     Route: 058
     Dates: start: 20150928
  8. SERTRALINE [Concomitant]
     Active Substance: SERTRALINE HYDROCHLORIDE

REACTIONS (1)
  - Hirsutism [Not Recovered/Not Resolved]

NARRATIVE: CASE EVENT DATE: 2015
